FAERS Safety Report 6495518-4 (Version None)
Quarter: 2009Q4

REPORT INFORMATION
  Report Type: 
  Country: None (occurrence: None)
  Receive Date: 20091214
  Receipt Date: 20090630
  Transmission Date: 20100525
  Serious: No
  Sender: FDA-Public Use
  Company Number: US-BRISTOL-MYERS SQUIBB COMPANY-14688709

PATIENT

DRUGS (3)
  1. ABILIFY [Suspect]
     Indication: SCHIZOPHRENIA
     Dosage: TAPERED DOWN TO 2MG AND 5 MG
  2. RISPERDAL [Suspect]
  3. QUETIAPINE [Suspect]

REACTIONS (1)
  - AKATHISIA [None]
